FAERS Safety Report 4520869-X (Version None)
Quarter: 2004Q4

REPORT INFORMATION
  Report Type: 
  Country: None (occurrence: None)
  Receive Date: 20041207
  Receipt Date: 20041119
  Transmission Date: 20050328
  Serious: Yes (Other)
  Sender: FDA-Public Use
  Company Number: TRP_0036_2004

PATIENT
  Age: 65 Year
  Sex: Female

DRUGS (6)
  1. RIBASPHERE [Suspect]
     Indication: HEPATITIS C
     Dosage: DF PO
     Route: 048
  2. INTERFERON ALFACON-1 (INFERGEN)/ INTERMUNE/9 MCG [Suspect]
     Indication: HEPATITIS C
     Dosage: 9 MCG QDAY SC
     Route: 058
     Dates: start: 20041022
  3. DIAZIDE [Concomitant]
  4. ACETYLSALICYLIC ACID [Concomitant]
  5. LISINOPRIL [Concomitant]
  6. NORVASC [Concomitant]

REACTIONS (1)
  - BLOOD URIC ACID INCREASED [None]
